FAERS Safety Report 6526968-5 (Version None)
Quarter: 2009Q4

REPORT INFORMATION
  Report Type: 
  Country: None (occurrence: None)
  Receive Date: 20091222
  Receipt Date: 20090129
  Transmission Date: 20100525
  Serious: No
  Sender: FDA-Public Use
  Company Number: 160942

PATIENT
  Sex: Male

DRUGS (2)
  1. DEMEROL [Suspect]
     Indication: DRUG USE FOR UNKNOWN INDICATION
     Dosage: 50 MG, ONCE, INTRAVENOUS
     Route: 042
     Dates: start: 20081219
  2. VERSED [Concomitant]

REACTIONS (1)
  - INJECTION SITE URTICARIA [None]
